FAERS Safety Report 7765282-7 (Version None)
Quarter: 2011Q3

REPORT INFORMATION
  Report Type: 
  Country: None (occurrence: None)
  Receive Date: 20110921
  Receipt Date: 20110906
  Transmission Date: 20111222
  Serious: No
  Sender: FDA-Public Use
  Company Number: US-JNJFOC-20110802120

PATIENT
  Age: 15 Year
  Sex: Male
  Weight: 74.84 kg

DRUGS (3)
  1. SERTRALINE HYDROCHLORIDE [Concomitant]
     Route: 048
  2. INVEGA [Suspect]
     Indication: BIPOLAR DISORDER
     Route: 048
  3. ZOLOFT [Concomitant]
     Indication: DEPRESSION

REACTIONS (3)
  - EJACULATION FAILURE [None]
  - ERECTILE DYSFUNCTION [None]
  - SEMEN VOLUME DECREASED [None]
